FAERS Safety Report 9958404 (Version 1)
Quarter: 2014Q1

REPORT INFORMATION
  Report Type: Spontaneous
  Country: CN (occurrence: CN)
  Receive Date: 20140305
  Receipt Date: 20140305
  Transmission Date: 20141002
  Serious: Yes (Life-Threatening)
  Sender: FDA-Public Use
  Company Number: CN-PFIZER INC-2014061975

PATIENT
  Age: 65 Year
  Sex: 0

DRUGS (2)
  1. SOLU-MEDROL [Suspect]
     Indication: ASTHMA
     Dosage: 40 MG, SINGLE
     Route: 042
     Dates: start: 20140228, end: 20140228
  2. CEFOPERAZONE SODIUM/SULBACTAM SODIUM [Concomitant]
     Dosage: UNK

REACTIONS (2)
  - Dyspnoea [Recovered/Resolved]
  - Cardio-respiratory arrest [Recovered/Resolved]
